FAERS Safety Report 9654986 (Version 2)
Quarter: 2013Q4

REPORT INFORMATION
  Report Type: Spontaneous
  Country: GB (occurrence: US)
  Receive Date: 20131029
  Receipt Date: 20131029
  Transmission Date: 20140711
  Serious: Yes (Other)
  Sender: FDA-Public Use
  Company Number: GB-NAPPMUNDI-USA-2012-0090981

PATIENT
  Sex: Male

DRUGS (5)
  1. OXYCONTIN (NDA 22-272) [Suspect]
     Indication: PRODUCT USED FOR UNKNOWN INDICATION
  2. OXYCODONE HYDROCHLORIDE (SIMILAR TO NDA 22-272) [Suspect]
     Indication: DRUG ABUSE
  3. HEROIN [Suspect]
     Indication: SUBSTANCE ABUSE
  4. PERCOCET /00867901/ [Suspect]
     Indication: DRUG DEPENDENCE
  5. VICODIN [Suspect]
     Indication: DRUG DEPENDENCE

REACTIONS (3)
  - Overdose [Unknown]
  - Polysubstance dependence [Unknown]
  - Substance abuse [Unknown]
